FAERS Safety Report 13440309 (Version 1)
Quarter: 2017Q2

REPORT INFORMATION
  Report Type: Spontaneous
  Country: US (occurrence: US)
  Receive Date: 20170413
  Receipt Date: 20170413
  Transmission Date: 20170830
  Serious: No
  Sender: FDA-Public Use
  Company Number: US-ASTELLAS-2016US030719

PATIENT
  Age: 32 Year
  Sex: Male

DRUGS (1)
  1. PROGRAF [Suspect]
     Active Substance: TACROLIMUS\TACROLIMUS ANHYDROUS
     Indication: RENAL TRANSPLANT
     Dosage: TWICE DAILY (2 MG EVERY MORNING AND 1 MG EVERY NIGHT)
     Route: 048

REACTIONS (2)
  - Memory impairment [Unknown]
  - Back pain [Unknown]
